FAERS Safety Report 18435177 (Version 1)
Quarter: 2020Q4

REPORT INFORMATION
  Report Type: Spontaneous
  Country: US (occurrence: US)
  Receive Date: 20201028
  Receipt Date: 20201028
  Transmission Date: 20210114
  Serious: No
  Sender: FDA-Public Use
  Company Number: US-BAYER-2020-221853

PATIENT
  Sex: Female

DRUGS (1)
  1. MIRENA [Suspect]
     Active Substance: LEVONORGESTREL
     Dosage: 20 ?G PER DAY CONTINUOUSLY
     Route: 015
     Dates: start: 20181116, end: 20200922

REACTIONS (9)
  - Ovarian cyst [None]
  - Loss of libido [None]
  - Abdominal pain lower [Recovered/Resolved]
  - Vulvovaginal dryness [None]
  - Bacterial infection [None]
  - Dyspareunia [None]
  - Medical device pain [None]
  - Fungal infection [None]
  - Migraine [None]

NARRATIVE: CASE EVENT DATE: 20200721
